FAERS Safety Report 7905731-4 (Version None)
Quarter: 2011Q4

REPORT INFORMATION
  Report Type: 
  Country: None (occurrence: None)
  Receive Date: 20111108
  Receipt Date: 20111026
  Transmission Date: 20120403
  Serious: Yes (Death, Other)
  Sender: FDA-Public Use
  Company Number: 2011MA016002

PATIENT
  Age: 42 Year
  Sex: Male
  Weight: 101 kg

DRUGS (4)
  1. PROMETHAZINE [Suspect]
     Indication: MENTAL DISORDER
     Dosage: 288 MG
  2. CHLORPROMAZINE HYDROCHLORIDE [Suspect]
     Indication: MENTAL DISORDER
     Dosage: 476 MG; PO
     Route: 048
  3. PHENOBARBITAL TAB [Suspect]
     Dosage: 804 MG
  4. ETIZOLAM (ETIZOLAM) [Suspect]
     Dosage: 12 MG

REACTIONS (5)
  - BRAIN OEDEMA [None]
  - PULMONARY CONGESTION [None]
  - INCORRECT DOSE ADMINISTERED [None]
  - DRUG INTERACTION [None]
  - TOXICITY TO VARIOUS AGENTS [None]
